FAERS Safety Report 23254671 (Version 1)
Quarter: 2023Q4

REPORT INFORMATION
  Report Type: Spontaneous
  Country: US (occurrence: US)
  Receive Date: 20231203
  Receipt Date: 20231203
  Transmission Date: 20240109
  Serious: Yes (Hospitalization, Other)
  Sender: FDA-Public Use
  Company Number: US-MLMSERVICE-20231116-4669399-1

PATIENT
  Age: 46 Year
  Sex: Male

DRUGS (2)
  1. TRIAMCINOLONE ACETONIDE [Interacting]
     Active Substance: TRIAMCINOLONE ACETONIDE
     Indication: Arthralgia
     Dosage: 1 DOSAGE FORM (1 TOTAL)
     Route: 014
  2. ITRACONAZOLE [Interacting]
     Active Substance: ITRACONAZOLE
     Indication: Histoplasmosis
     Dosage: UNK
     Route: 065

REACTIONS (3)
  - Hypothalamic pituitary adrenal axis suppression [Recovered/Resolved]
  - Adrenal insufficiency [Recovered/Resolved]
  - Drug interaction [Recovered/Resolved]
